FAERS Safety Report 8029780-3 (Version None)
Quarter: 2012Q1

REPORT INFORMATION
  Report Type: 
  Country: None (occurrence: None)
  Receive Date: 20120104
  Receipt Date: 20111219
  Transmission Date: 20120608
  Serious: Yes (Other)
  Sender: FDA-Public Use
  Company Number: FK201103083

PATIENT
  Sex: Female

DRUGS (1)
  1. LETROZOLE [Suspect]
     Dates: start: 20100401

REACTIONS (4)
  - MYELOMALACIA [None]
  - ARTHRALGIA [None]
  - PARAESTHESIA [None]
  - SPONDYLITIC MYELOPATHY [None]
